FAERS Safety Report 8593684 (Version 3)
Quarter: 2014Q1

REPORT INFORMATION
  Report Type: Spontaneous
  Country: US (occurrence: US)
  Receive Date: 20120604
  Receipt Date: 20140107
  Transmission Date: 20141002
  Serious: Yes (Disabling)
  Sender: FDA-Public Use
  Company Number: US-ASTRAZENECA-2012SE34968

PATIENT
  Age: 714 Month
  Sex: Female

DRUGS (26)
  1. NEXIUM [Suspect]
     Indication: GASTROOESOPHAGEAL REFLUX DISEASE
     Route: 048
     Dates: start: 2006
  2. NEXIUM [Suspect]
     Indication: GASTROOESOPHAGEAL REFLUX DISEASE
     Route: 048
     Dates: start: 20061005
  3. OMEPRAZOLE [Suspect]
     Route: 048
  4. OMEPRAZOLE [Suspect]
     Route: 048
     Dates: start: 20080801
  5. PRILOSEC OTC [Suspect]
     Route: 048
  6. PREVACID [Concomitant]
  7. CIMETIDINE [Concomitant]
  8. RANITIDINE [Concomitant]
  9. PEPCID OTC [Concomitant]
     Dosage: AS NEEDED
  10. SINGULAR [Concomitant]
     Indication: MULTIPLE ALLERGIES
  11. ZOLPIDEN [Concomitant]
     Indication: SLEEP DISORDER
  12. LORATADINE [Concomitant]
     Indication: MULTIPLE ALLERGIES
  13. NAPROZEN [Concomitant]
     Indication: INFLAMMATION
  14. MULTIPLE VITAMINS [Concomitant]
  15. GLUCOSAMINE [Concomitant]
  16. CHONDROITIN [Concomitant]
  17. LUNESTA [Concomitant]
     Dates: start: 20061005
  18. AMITRIPTYLINE [Concomitant]
     Dates: start: 20061005
  19. NAPROXEN SODIUM [Concomitant]
     Dates: start: 20061114
  20. FEXOFENADINE [Concomitant]
     Dates: start: 20070208
  21. ZOLPIDEM TART [Concomitant]
     Dates: start: 20071022
  22. TRAZADONE [Concomitant]
     Dates: start: 20080630
  23. PREMARIN [Concomitant]
     Dosage: 0.625 MG/GM
     Dates: start: 20080921
  24. TEMAZEPAM [Concomitant]
     Dates: start: 20100527
  25. FLUCONAZOLE [Concomitant]
     Dates: start: 20110301
  26. METRONIDAZOLE [Concomitant]
     Dates: start: 20111111

REACTIONS (11)
  - Depression [Unknown]
  - Osteoporosis [Unknown]
  - Multiple fractures [Unknown]
  - Cartilage injury [Unknown]
  - Wrist fracture [Unknown]
  - Arthritis [Unknown]
  - Osteoarthritis [Unknown]
  - Fall [Unknown]
  - Arthropathy [Unknown]
  - Meniscus injury [Unknown]
  - Patellofemoral pain syndrome [Unknown]
